APPROVED DRUG PRODUCT: TRIOSTAT
Active Ingredient: LIOTHYRONINE SODIUM
Strength: EQ 0.01MG BASE/ML **Federal Register determination that product was not discontinued or withdrawn for safety or effectiveness reasons**
Dosage Form/Route: INJECTABLE;INJECTION
Application: N020105 | Product #001
Applicant: PH HEALTH LTD
Approved: Dec 31, 1991 | RLD: Yes | RS: No | Type: DISCN